FAERS Safety Report 18494337 (Version 1)
Quarter: 2020Q4

REPORT INFORMATION
  Report Type: Spontaneous
  Country: SK (occurrence: SK)
  Receive Date: 20201112
  Receipt Date: 20201112
  Transmission Date: 20210114
  Serious: Yes (Other)
  Sender: FDA-Public Use
  Company Number: SK-ROCHE-2709613

PATIENT
  Sex: Female

DRUGS (1)
  1. XELODA [Suspect]
     Active Substance: CAPECITABINE
     Indication: BREAST CANCER
     Route: 048
     Dates: start: 20190506, end: 201908

REACTIONS (7)
  - Renal cyst [Unknown]
  - Alopecia [Unknown]
  - Drug resistance [Unknown]
  - Neoplasm [Unknown]
  - Muscle neoplasm [Unknown]
  - Mediastinum neoplasm [Unknown]
  - Asthenia [Unknown]
